FAERS Safety Report 15903017 (Version 3)
Quarter: 2019Q1

REPORT INFORMATION
  Report Type: Spontaneous
  Country: JP (occurrence: JP)
  Receive Date: 20190202
  Receipt Date: 20190319
  Transmission Date: 20190417
  Serious: Yes (Hospitalization)
  Sender: FDA-Public Use
  Company Number: JP-ROCHE-2257315

PATIENT
  Age: 8 Year
  Sex: Male

DRUGS (6)
  1. RAPIACTA [Suspect]
     Active Substance: PERAMIVIR
     Indication: INFLUENZA
     Route: 065
     Dates: start: 20190118, end: 20190118
  2. FAMOTIDINE. [Concomitant]
     Active Substance: FAMOTIDINE
     Indication: GASTRITIS PROPHYLAXIS
     Route: 065
     Dates: start: 20190118, end: 20190120
  3. XOFLUZA [Suspect]
     Active Substance: BALOXAVIR MARBOXIL
     Indication: INFLUENZA
     Route: 048
     Dates: start: 20190118, end: 20190118
  4. CERCINE [Concomitant]
     Active Substance: DIAZEPAM
     Indication: SEIZURE
     Route: 042
     Dates: start: 20190118, end: 20190118
  5. NOBELBAR [Concomitant]
     Active Substance: PHENOBARBITAL SODIUM
     Indication: SEIZURE
     Route: 065
     Dates: start: 20190118, end: 20190118
  6. PRIDOL [Concomitant]
     Active Substance: METHYLPREDNISOLONE SODIUM SUCCINATE
     Indication: ENCEPHALOPATHY
     Route: 065
     Dates: start: 20190118, end: 20190118

REACTIONS (3)
  - Seizure [Recovering/Resolving]
  - Cough [Recovering/Resolving]
  - Urticaria [Recovering/Resolving]

NARRATIVE: CASE EVENT DATE: 20190118
